FAERS Safety Report 5634603-3 (Version None)
Quarter: 2008Q1

REPORT INFORMATION
  Report Type: 
  Country: None (occurrence: None)
  Receive Date: 20080131
  Receipt Date: 20071005
  Transmission Date: 20080703
  Serious: No
  Sender: FDA-Public Use
  Company Number: 2007-US-000261

PATIENT
  Age: 8 Year
  Sex: Male
  Weight: 21.8 kg

DRUGS (1)
  1. INCRELEX [Suspect]
     Indication: IMMUNODEFICIENCY
     Dosage: 25 UT, BID
     Dates: start: 20070723

REACTIONS (2)
  - HYPOGLYCAEMIA [None]
  - INJECTION SITE SWELLING [None]
